FAERS Safety Report 7624330-5 (Version None)
Quarter: 2011Q3

REPORT INFORMATION
  Report Type: 
  Country: None (occurrence: None)
  Receive Date: 20110720
  Receipt Date: 20110712
  Transmission Date: 20111222
  Serious: Yes (Other)
  Sender: FDA-Public Use
  Company Number: FR-BAYER-2011-061684

PATIENT
  Age: 35 Year
  Sex: Male

DRUGS (2)
  1. BETASERON [Suspect]
     Dosage: UNK
     Dates: start: 20110601
  2. BETASERON [Suspect]
     Dosage: 0.75 ML, UNK
     Dates: start: 20110601

REACTIONS (5)
  - CARDIAC DISORDER [None]
  - FORMICATION [None]
  - COLD SWEAT [None]
  - MALAISE [None]
  - PARAESTHESIA [None]
